FAERS Safety Report 20156381 (Version 1)
Quarter: 2021Q4

REPORT INFORMATION
  Report Type: Spontaneous
  Country: CN (occurrence: CN)
  Receive Date: 20211207
  Receipt Date: 20211207
  Transmission Date: 20220304
  Serious: Yes (Hospitalization)
  Sender: FDA-Public Use
  Company Number: CN-BAXTER-2021BAX038326

PATIENT
  Age: 29 Year
  Sex: Female
  Weight: 62.5 kg

DRUGS (2)
  1. IFOSFAMIDE [Suspect]
     Active Substance: IFOSFAMIDE
     Indication: Osteosarcoma
     Dosage: IFO (3.6G + NS 500ML QD IVGTT) CHEMOTHERAPY
     Route: 041
     Dates: start: 20210707, end: 20210711
  2. SODIUM CHLORIDE [Suspect]
     Active Substance: SODIUM CHLORIDE
     Indication: Medication dilution
     Dosage: IFO (3.6G + NS 500ML QD IVGTT)
     Route: 041
     Dates: start: 20210707, end: 20210711

REACTIONS (1)
  - Myelosuppression [Recovering/Resolving]

NARRATIVE: CASE EVENT DATE: 20210715
